FAERS Safety Report 16350785 (Version 1)
Quarter: 2019Q2

REPORT INFORMATION
  Report Type: Spontaneous
  Country: US (occurrence: US)
  Receive Date: 20190524
  Receipt Date: 20190524
  Transmission Date: 20190711
  Serious: No
  Sender: FDA-Public Use
  Company Number: US-009507513-1904USA013078

PATIENT
  Age: 43 Year
  Sex: Male

DRUGS (1)
  1. PROVENTIL [Suspect]
     Active Substance: ALBUTEROL
     Indication: BRONCHITIS
     Dosage: STRENGTH: 90 MCG/ACT 6.8 GM, 2 PUFFS AS NEEDED, ORAL INHALATION, START DATE: A WEEK AND A HALF AGO
     Route: 055
     Dates: start: 20190415

REACTIONS (4)
  - Dyspnoea [Recovered/Resolved]
  - Product prescribing error [Unknown]
  - Product dose omission [Unknown]
  - Device damage [Unknown]

NARRATIVE: CASE EVENT DATE: 20190415
